FAERS Safety Report 9840017 (Version 1)
Quarter: 2014Q1

REPORT INFORMATION
  Report Type: Spontaneous
  Country: US (occurrence: None)
  Receive Date: 20140117
  Receipt Date: 20140117
  Transmission Date: 20141002
  Serious: No
  Sender: FDA-Public Use
  Company Number: None

PATIENT
  Age: 65 Year
  Sex: Male
  Weight: 61 kg

DRUGS (2)
  1. RIVAROXABAN [Suspect]
     Indication: HIP ARTHROPLASTY
     Dosage: BY MOUTH
     Dates: start: 20130918, end: 20130919
  2. RIVAROXABAN [Suspect]
     Indication: THROMBOSIS PROPHYLAXIS
     Dosage: BY MOUTH
     Dates: start: 20130918, end: 20130919

REACTIONS (1)
  - Incision site haematoma [None]
